FAERS Safety Report 9643010 (Version 1)
Quarter: 2013Q4

REPORT INFORMATION
  Report Type: Spontaneous
  Country: US (occurrence: None)
  Receive Date: 20131023
  Receipt Date: 20131023
  Transmission Date: 20140711
  Serious: Yes (Death)
  Sender: FDA-Public Use
  Company Number: None

PATIENT
  Age: 65 Year
  Sex: Male

DRUGS (1)
  1. SUTENT [Suspect]
     Dosage: 1QD X 4 WKS, 2 OFF
     Route: 048
     Dates: start: 20131001, end: 20131017

REACTIONS (1)
  - Death [None]
